FAERS Safety Report 21203399 (Version 1)
Quarter: 2022Q3

REPORT INFORMATION
  Report Type: Spontaneous
  Country: FI (occurrence: None)
  Receive Date: 20220811
  Receipt Date: 20220811
  Transmission Date: 20221027
  Serious: Yes (Other)
  Sender: FDA-Public Use
  Company Number: FI-ROCHE-3154914

PATIENT
  Age: 48 Year
  Sex: Female

DRUGS (2)
  1. OCREVUS [Suspect]
     Active Substance: OCRELIZUMAB
     Indication: Relapsing-remitting multiple sclerosis
     Route: 065
  2. MAVENCLAD [Concomitant]
     Active Substance: CLADRIBINE
     Dosage: LATEST CYCLE WAS IN //2020

REACTIONS (1)
  - Lymphopenia [Unknown]
